FAERS Safety Report 11251904 (Version 1)
Quarter: 2015Q3

REPORT INFORMATION
  Report Type: Spontaneous
  Country: US (occurrence: US)
  Receive Date: 20150708
  Receipt Date: 20150708
  Transmission Date: 20151125
  Serious: Yes (Death, Hospitalization)
  Sender: FDA-Public Use
  Company Number: US-ELI_LILLY_AND_COMPANY-US201207009331

PATIENT
  Sex: Male
  Weight: 66.6 kg

DRUGS (7)
  1. GEMZAR [Suspect]
     Active Substance: GEMCITABINE HYDROCHLORIDE
     Indication: PANCREATIC CARCINOMA
     Dosage: UNK, UNKNOWN
     Route: 065
  2. ZOFRAN [Concomitant]
     Active Substance: ONDANSETRON HYDROCHLORIDE
  3. DURAGESIC [Concomitant]
     Active Substance: FENTANYL
  4. PRILOSEC [Concomitant]
     Active Substance: OMEPRAZOLE MAGNESIUM
  5. SENNA [Concomitant]
     Active Substance: SENNA LEAF\SENNOSIDES\SENNOSIDES A AND B
  6. COLACE [Concomitant]
     Active Substance: DOCUSATE SODIUM
  7. DILAUDID [Concomitant]
     Active Substance: HYDROMORPHONE HYDROCHLORIDE

REACTIONS (1)
  - Neoplasm progression [Fatal]
